FAERS Safety Report 8057144-5 (Version None)
Quarter: 2012Q1

REPORT INFORMATION
  Report Type: 
  Country: None (occurrence: None)
  Receive Date: 20120119
  Receipt Date: 20120112
  Transmission Date: 20120608
  Serious: Yes (Other)
  Sender: FDA-Public Use
  Company Number: PHHY2012US003033

PATIENT
  Age: 69 Year
  Sex: Female

DRUGS (15)
  1. WARFARIN SODIUM [Interacting]
     Dosage: 2 MG, DAILY
  2. LEVOTHYROXINE SODIUM [Concomitant]
     Dosage: 150 UG, UNK
  3. NIACIN [Interacting]
     Dosage: 500 MG, DAILY
     Dates: start: 20091101
  4. ATENOLOL [Concomitant]
     Dosage: 50 MG, UNK
  5. INSULIN ASPART [Concomitant]
  6. POTASSIUM CHLORIDE [Concomitant]
     Dosage: 20 MEQ, UNK
  7. FUROSEMIDE [Concomitant]
     Dosage: 20 MG, UNK
  8. FENOFIBRATE [Concomitant]
     Dosage: 145 MG, UNK
  9. WARFARIN SODIUM [Suspect]
     Dosage: 2.5 MG, DAILY
     Dates: start: 20080201
  10. BENAZEPRIL HYDROCHLORIDE [Concomitant]
     Dosage: 20 MG, UNK
  11. FOLIC ACID [Concomitant]
     Dosage: 400 UG, UNK
  12. NIACIN [Interacting]
     Dosage: 1000 MG, DAILY
  13. ASPIRIN [Concomitant]
     Dosage: 81 MG, UNK
  14. INSULIN GLARGINE [Concomitant]
     Dosage: 60 U, UNK
  15. ATORVASTATIN [Concomitant]
     Dosage: 10 MG, UNK

REACTIONS (2)
  - INTERNATIONAL NORMALISED RATIO INCREASED [None]
  - DRUG INTERACTION [None]
